FAERS Safety Report 7449240-8 (Version None)
Quarter: 2011Q2

REPORT INFORMATION
  Report Type: 
  Country: None (occurrence: None)
  Receive Date: 20110502
  Receipt Date: 20110412
  Transmission Date: 20111010
  Serious: Yes (Death, Other)
  Sender: FDA-Public Use
  Company Number: US-BAYER-201011403NA

PATIENT
  Age: 58 Year
  Sex: Male
  Weight: 90.703 kg

DRUGS (36)
  1. TRASYLOL [Suspect]
     Indication: ABSCESS DRAINAGE
     Dosage: 50 CC/HR INFUSION
     Route: 042
     Dates: end: 20041119
  2. TRASYLOL [Suspect]
     Indication: PERICARDIAL REPAIR
  3. LISINOPRIL [Concomitant]
     Indication: HYPERTENSION
  4. LEVOFLOXACIN [Concomitant]
     Dosage: 250 MG, QD
     Route: 048
  5. CLOMIPRAMINE [Concomitant]
     Dosage: 25 MG, QD
     Route: 048
  6. NPH INSULIN [Concomitant]
     Dosage: 10 UNITS AT BEAKFAST
     Route: 058
  7. CITRULLINE [Concomitant]
     Dosage: 100 MG, QD
     Route: 048
  8. PEPCID [Concomitant]
  9. NAPROXEN [Concomitant]
     Indication: PRODUCT USED FOR UNKNOWN INDICATION
  10. LASIX [Concomitant]
     Dosage: 40 MG EVERY 8 HOURS
     Route: 042
  11. ALBUTEROL [Concomitant]
  12. AMPICILLIN [Concomitant]
  13. SERTRALINE [Concomitant]
  14. VANCOMYCIN [Concomitant]
     Dosage: 1 G, UNK
     Route: 042
     Dates: start: 20041119, end: 20041119
  15. HEPARIN [Concomitant]
     Dosage: UNK
     Route: 042
     Dates: start: 20041119, end: 20041119
  16. ANAPROX [Concomitant]
     Indication: PRODUCT USED FOR UNKNOWN INDICATION
  17. ATENOLOL [Concomitant]
     Dosage: 50 MG, QD
     Route: 048
  18. INSULIN [INSULIN] [Concomitant]
     Dosage: DRIP
  19. ACETAMINOPHEN [Concomitant]
  20. MIDAZOLAM [Concomitant]
     Dosage: UNK
     Dates: start: 20041119, end: 20041119
  21. NIPRIDE [Concomitant]
  22. MOTRIN [Concomitant]
     Indication: PRODUCT USED FOR UNKNOWN INDICATION
  23. LASIX [Concomitant]
     Dosage: 80 MG, QD
     Route: 048
  24. PROTONIX [Concomitant]
  25. FENTANYL [Concomitant]
     Dosage: UNK
     Dates: start: 20041119, end: 20041119
  26. METFORMIN [Concomitant]
     Dosage: 850 MG, TID
     Route: 048
  27. ZINACEF [Concomitant]
     Dosage: 51 G, UNK
     Route: 042
     Dates: start: 20041119, end: 20041119
  28. PROTAMINE SULFATE [Concomitant]
     Dosage: UNK
     Dates: start: 20041119, end: 20041119
  29. CELEBREX [Concomitant]
     Indication: PRODUCT USED FOR UNKNOWN INDICATION
  30. IBUPROFEN [Concomitant]
     Indication: PRODUCT USED FOR UNKNOWN INDICATION
  31. HYDROCHLOROTHIAZIDE [Concomitant]
     Dosage: 25 MG, QD
     Route: 048
  32. NPH INSULIN [Concomitant]
     Dosage: 20 UNITS AT BEDTIME
     Route: 058
  33. COUMADIN [Concomitant]
  34. AMBIEN [Concomitant]
  35. SCOPOLAMINE [Concomitant]
     Dosage: UNK
     Dates: start: 20041119, end: 20041119
  36. TRASYLOL [Suspect]
     Indication: AORTIC VALVE REPLACEMENT
     Dosage: 200 CC LOADING DOSE
     Route: 042
     Dates: start: 20041119

REACTIONS (14)
  - RENAL INJURY [None]
  - UNEVALUABLE EVENT [None]
  - PAIN [None]
  - ANXIETY [None]
  - FEAR [None]
  - DEATH [None]
  - RENAL IMPAIRMENT [None]
  - ORGAN FAILURE [None]
  - DEPRESSION [None]
  - CARDIAC DISORDER [None]
  - CEREBROVASCULAR ACCIDENT [None]
  - INJURY [None]
  - RENAL FAILURE [None]
  - ANHEDONIA [None]
